FAERS Safety Report 8075955-7 (Version None)
Quarter: 2012Q1

REPORT INFORMATION
  Report Type: 
  Country: None (occurrence: None)
  Receive Date: 20120127
  Receipt Date: 20120118
  Transmission Date: 20120608
  Serious: Yes (Hospitalization)
  Sender: FDA-Public Use
  Company Number: JP-SANOFI-AVENTIS-2011SA065729

PATIENT
  Age: 79 Year
  Sex: Female
  Weight: 42.7 kg

DRUGS (17)
  1. ALENDRONATE SODIUM [Concomitant]
     Indication: OSTEOPOROSIS
     Dates: start: 20110214
  2. ZOLPIDEM [Suspect]
     Indication: INSOMNIA
     Route: 048
  3. ASPIRIN [Suspect]
     Indication: CEREBRAL INFARCTION
     Route: 048
     Dates: start: 20110919, end: 20111003
  4. KERLONE [Concomitant]
     Indication: HYPERTENSION
     Route: 048
     Dates: start: 20110908, end: 20110920
  5. RADICUT [Suspect]
     Indication: CEREBRAL INFARCTION
     Route: 041
     Dates: start: 20110905, end: 20110918
  6. HYDROCHLOROTHIAZIDE/LOSARTAN POTASSIUM [Concomitant]
     Indication: HYPERTENSION
     Dates: start: 20110704
  7. MEXITIL [Concomitant]
     Indication: ARRHYTHMIA
  8. FAMOTIDINE [Suspect]
     Dosage: ORODISPERSIBLE CR TABLET
     Route: 048
     Dates: start: 20110906, end: 20111003
  9. METHYCOBAL [Concomitant]
  10. GRAMALIL [Concomitant]
     Indication: CEREBRAL INFARCTION
  11. HUMALOG [Concomitant]
     Indication: TYPE 2 DIABETES MELLITUS
     Dates: start: 20100616
  12. KERLONE [Concomitant]
     Dates: start: 20110906
  13. EPADEL [Concomitant]
  14. LIVALO [Concomitant]
  15. ASPIRIN [Suspect]
     Indication: ANGINA PECTORIS
     Route: 048
     Dates: start: 20110919, end: 20111003
  16. BERAPROST SODIUM [Concomitant]
     Dates: start: 20110905
  17. ETODOLAC [Suspect]
     Route: 048
     Dates: start: 20110905, end: 20111003

REACTIONS (1)
  - NEUTROPENIA [None]
